FAERS Safety Report 8990501 (Version 1)
Quarter: 2012Q4

REPORT INFORMATION
  Report Type: Report from Study
  Country: US (occurrence: US)
  Receive Date: 20121228
  Receipt Date: 20121228
  Transmission Date: 20130627
  Serious: Yes (Life-Threatening, Hospitalization)
  Sender: FDA-Public Use
  Company Number: US-MERCK-1212USA010672

PATIENT
  Age: 69 Year
  Sex: Male
  Weight: 65.5 kg

DRUGS (6)
  1. VORINOSTAT [Suspect]
     Indication: DIFFUSE LARGE B-CELL LYMPHOMA
     Dosage: 400 mg, qd, days 1-5
     Route: 048
     Dates: start: 20121205, end: 20121209
  2. RITUXIMAB [Suspect]
     Indication: DIFFUSE LARGE B-CELL LYMPHOMA
     Dosage: 375 mg/m2 on day 3
     Route: 042
     Dates: start: 20121207, end: 20121207
  3. CYCLOPHOSPHAMIDE [Suspect]
     Indication: DIFFUSE LARGE B-CELL LYMPHOMA
     Dosage: 750 mg/m2 on day 3
     Route: 042
     Dates: start: 20121207, end: 20121207
  4. DOXORUBICIN [Suspect]
     Indication: DIFFUSE LARGE B-CELL LYMPHOMA
     Dosage: 50 mg/m2, on day 3
     Route: 042
     Dates: start: 20121207, end: 20121207
  5. VINCRISTINE [Suspect]
     Indication: DIFFUSE LARGE B-CELL LYMPHOMA
     Dosage: 1.4 mg/m2 on day 3
     Route: 042
     Dates: start: 20121207, end: 20121207
  6. PREDNISONE [Suspect]
     Indication: DIFFUSE LARGE B-CELL LYMPHOMA
     Dosage: 100 mg, qd, days 3-7
     Route: 048
     Dates: start: 20121207, end: 20121211

REACTIONS (3)
  - Atrial fibrillation [Not Recovered/Not Resolved]
  - Cerebrovascular accident [Not Recovered/Not Resolved]
  - Deep vein thrombosis [Not Recovered/Not Resolved]
